FAERS Safety Report 9369345 (Version 1)
Quarter: 2013Q2

REPORT INFORMATION
  Report Type: Spontaneous
  Country: US (occurrence: US)
  Receive Date: 20130626
  Receipt Date: 20130626
  Transmission Date: 20140414
  Serious: Yes (Death, Hospitalization, Disabling)
  Sender: FDA-Public Use
  Company Number: US-MYLANLABS-2013S1013414

PATIENT
  Age: 16 Year
  Sex: Female

DRUGS (5)
  1. FLUDARABINE [Suspect]
     Dosage: 40MG/M2 PER DAY X 5 DAYS
     Route: 050
  2. THIOTEPA [Concomitant]
     Route: 065
  3. MELPHALAN [Concomitant]
     Route: 065
  4. MUROMONAB-CD3 [Concomitant]
     Route: 065
  5. MYCOPHENOLATE [Concomitant]
     Indication: PROPHYLAXIS AGAINST GRAFT VERSUS HOST DISEASE
     Route: 065

REACTIONS (1)
  - Leukoencephalopathy [Fatal]
